FAERS Safety Report 9900734 (Version 2)
Quarter: 2014Q1

REPORT INFORMATION
  Report Type: Spontaneous
  Country: IT (occurrence: IT)
  Receive Date: 20140217
  Receipt Date: 20140224
  Transmission Date: 20141002
  Serious: Yes (Other)
  Sender: FDA-Public Use
  Company Number: IT-RANBAXY-2014RR-77975

PATIENT
  Age: 72 Year
  Sex: Male

DRUGS (14)
  1. ATORVASTATIN [Suspect]
     Indication: HYPERCHOLESTEROLAEMIA
     Dosage: 40 MG/DAY
     Route: 065
  2. ATORVASTATIN [Interacting]
     Indication: HYPERTRIGLYCERIDAEMIA
  3. RANOLAZINE [Interacting]
     Indication: ANGINA PECTORIS
     Dosage: 1000 MG/DAY
     Route: 065
     Dates: start: 201107
  4. ALLOPURINOL [Suspect]
     Indication: PRODUCT USED FOR UNKNOWN INDICATION
     Dosage: 150 MG/DAY
     Route: 065
  5. ASPIRIN [Suspect]
     Indication: MYOCARDIAL ISCHAEMIA
     Dosage: 100 MG/DAY
     Route: 065
  6. VALSARTAN [Suspect]
     Indication: HYPERTENSION
     Dosage: 20 MG/DAY
     Route: 065
  7. BISOPROLOL [Suspect]
     Indication: HYPERTENSION
     Dosage: 2.5 MG/DAY
     Route: 065
  8. OMEPRAZOLE [Suspect]
     Indication: PRODUCT USED FOR UNKNOWN INDICATION
     Dosage: 20 MG/DAY
     Route: 065
  9. FUROSEMIDE [Suspect]
     Indication: HYPERTENSION
     Dosage: 25 MG/ TWICE WEEKLY
     Route: 065
  10. QUETIAPINE [Suspect]
     Indication: COGNITIVE DISORDER
     Dosage: 50 MG/DAY
     Route: 065
  11. QUETIAPINE [Suspect]
     Indication: ABNORMAL BEHAVIOUR
  12. SERTRALINE [Suspect]
     Indication: COGNITIVE DISORDER
     Dosage: 25 MG/DAY
     Route: 065
  13. SERTRALINE [Suspect]
     Indication: ABNORMAL BEHAVIOUR
  14. NITROGLYCERIN [Concomitant]
     Indication: MYOCARDIAL ISCHAEMIA
     Dosage: 10 MG/DAY
     Route: 062

REACTIONS (2)
  - Rhabdomyolysis [Recovered/Resolved]
  - Drug interaction [Recovered/Resolved]
